FAERS Safety Report 12566307 (Version 2)
Quarter: 2016Q3

REPORT INFORMATION
  Report Type: Report from Study
  Country: US (occurrence: US)
  Receive Date: 20160718
  Receipt Date: 20160801
  Transmission Date: 20161109
  Serious: Yes (Other)
  Sender: FDA-Public Use
  Company Number: US-ABBVIE-16P-163-1677760-00

PATIENT
  Age: 24 Year
  Sex: Female

DRUGS (1)
  1. LUPRON DEPOT [Suspect]
     Active Substance: LEUPROLIDE ACETATE
     Indication: ENDOMETRIOSIS
     Route: 030
     Dates: start: 201301

REACTIONS (4)
  - Hysterectomy [Recovered/Resolved]
  - Weight decreased [Unknown]
  - Hot flush [Unknown]
  - Alopecia [Unknown]

NARRATIVE: CASE EVENT DATE: 2013
